FAERS Safety Report 5452943-8 (Version None)
Quarter: 2007Q3

REPORT INFORMATION
  Report Type: 
  Country: None (occurrence: None)
  Receive Date: 20070914
  Receipt Date: 20070828
  Transmission Date: 20080115
  Serious: Yes (Other)
  Sender: FDA-Public Use
  Company Number: JP-ROCHE-492658

PATIENT
  Age: 11 Year
  Sex: Female
  Weight: 36 kg

DRUGS (7)
  1. TAMIFLU [Suspect]
     Dosage: FORM: DRY SYRUP.
     Route: 048
     Dates: start: 20070207, end: 20070207
  2. TAMIFLU [Suspect]
     Dosage: FORM: DRY SYRUP. DOSE WAS INCREASED.
     Route: 048
     Dates: start: 20070208, end: 20070209
  3. FLOMOX [Concomitant]
     Indication: DRUG USE FOR UNKNOWN INDICATION
     Route: 048
     Dates: start: 20070207, end: 20070212
  4. TRIPROLIDINE HYDROCHLORIDE [Concomitant]
     Dosage: TRADE NAME REPORTED AS VENEN.
     Route: 048
     Dates: start: 20070207, end: 20070212
  5. BROCIN [Concomitant]
     Route: 048
     Dates: start: 20070207, end: 20070212
  6. SENEGA [Concomitant]
     Route: 048
     Dates: start: 20070207, end: 20070212
  7. CALONAL [Concomitant]
     Route: 048
     Dates: start: 20070207, end: 20070212

REACTIONS (1)
  - DELIRIUM [None]
